FAERS Safety Report 6956467-8 (Version None)
Quarter: 2010Q3

REPORT INFORMATION
  Report Type: 
  Country: None (occurrence: None)
  Receive Date: 20100830
  Receipt Date: 20100817
  Transmission Date: 20110219
  Serious: Yes (Disabling)
  Sender: FDA-Public Use
  Company Number: US-BAYER-201017102NA

PATIENT
  Age: 76 Year
  Sex: Female
  Weight: 90 kg

DRUGS (13)
  1. SOTALOL [Suspect]
     Indication: ATRIAL FIBRILLATION
     Route: 065
     Dates: start: 20090201, end: 20100211
  2. PRED FORTE [Concomitant]
  3. WARFARIN SODIUM [Concomitant]
  4. VOLTAREN [Concomitant]
  5. LUMIGAN [Concomitant]
  6. DELTAZEN [Concomitant]
  7. LIPITOR [Concomitant]
     Route: 048
  8. LASIX [Concomitant]
  9. AVALIDE [Concomitant]
     Dosage: 300-25MG
  10. AMLODIPINE BESYLATE [Concomitant]
     Route: 048
  11. TRAZODONE HCL [Concomitant]
     Route: 048
  12. METFORMIN HCL [Concomitant]
     Dosage: TOTAL DAILY DOSE: 500 MG  UNIT DOSE: 250 MG
     Route: 048
  13. TRUSOPT [Concomitant]
     Dosage: 2 %

REACTIONS (2)
  - INTRAOCULAR PRESSURE DECREASED [None]
  - VISUAL ACUITY REDUCED [None]
